FAERS Safety Report 7238857-1 (Version None)
Quarter: 2011Q1

REPORT INFORMATION
  Report Type: 
  Country: None (occurrence: None)
  Receive Date: 20110121
  Receipt Date: 20110111
  Transmission Date: 20110831
  Serious: Yes (Hospitalization)
  Sender: FDA-Public Use
  Company Number: PHHY2010JP88368

PATIENT
  Age: 60 Year
  Sex: Female

DRUGS (3)
  1. ZOMETA [Suspect]
     Indication: METASTASES TO BONE
     Dosage: UNK
     Route: 042
     Dates: start: 20060701, end: 20080601
  2. ANASTROZOLE [Concomitant]
     Dosage: 1 DF, QD
     Dates: start: 20060701, end: 20080601
  3. MEDROXYPROGESTERONE ACETATE [Concomitant]
     Dosage: 200 MG PER DAY
     Dates: start: 20060701, end: 20080601

REACTIONS (8)
  - BONE DISORDER [None]
  - GINGIVAL ERYTHEMA [None]
  - GINGIVAL SWELLING [None]
  - GINGIVAL PAIN [None]
  - ABSCESS ORAL [None]
  - OSTEOMYELITIS [None]
  - OSTEONECROSIS OF JAW [None]
  - PARAESTHESIA ORAL [None]
